FAERS Safety Report 23849729 (Version 1)
Quarter: 2024Q2

REPORT INFORMATION
  Report Type: Spontaneous
  Country: US (occurrence: None)
  Receive Date: 20240512
  Receipt Date: 20240512
  Transmission Date: 20240715
  Serious: Yes (Hospitalization)
  Sender: FDA-Public Use
  Company Number: None

PATIENT
  Age: 83 Year
  Sex: Male

DRUGS (1)
  1. VANCOMYCIN HYDROCHLORIDE [Suspect]
     Active Substance: VANCOMYCIN HYDROCHLORIDE
     Indication: Sepsis
     Dosage: FREQUENCY : ONCE;?
     Route: 042
     Dates: start: 20200720, end: 20200721

REACTIONS (2)
  - Thrombocytopenia [None]
  - Haemoglobin decreased [None]

NARRATIVE: CASE EVENT DATE: 20200721
